FAERS Safety Report 6764907-2 (Version None)
Quarter: 2010Q2

REPORT INFORMATION
  Report Type: 
  Country: None (occurrence: None)
  Receive Date: 20100610
  Receipt Date: 20100601
  Transmission Date: 20101027
  Serious: Yes (Hospitalization)
  Sender: FDA-Public Use
  Company Number: AT-ABBOTT-10P-009-0648026-00

PATIENT
  Age: 29 Year
  Sex: Female

DRUGS (8)
  1. DEPAKINE CHRONO RETARD [Suspect]
     Indication: DRUG USE FOR UNKNOWN INDICATION
     Route: 048
     Dates: start: 20090413
  2. CLOZAPINE [Suspect]
     Indication: DRUG USE FOR UNKNOWN INDICATION
     Route: 048
     Dates: start: 20090506, end: 20090516
  3. CLOZAPINE [Suspect]
     Route: 048
     Dates: start: 20090517, end: 20090522
  4. CLOZAPINE [Suspect]
     Route: 048
     Dates: start: 20100523
  5. OXAZEPAM [Suspect]
     Indication: DRUG USE FOR UNKNOWN INDICATION
     Route: 048
     Dates: start: 20090506, end: 20090515
  6. OXAZEPAM [Suspect]
     Route: 048
     Dates: start: 20090502, end: 20090505
  7. BIPERIDEN HYDROCHLORIDE TAB [Concomitant]
     Indication: DRUG USE FOR UNKNOWN INDICATION
     Dates: start: 20090413
  8. VENLAFAXINE HCL [Concomitant]
     Indication: DRUG USE FOR UNKNOWN INDICATION
     Dates: start: 20090413

REACTIONS (4)
  - DIZZINESS [None]
  - FALL [None]
  - HEAD INJURY [None]
  - TRAUMATIC HAEMORRHAGE [None]
